FAERS Safety Report 9014709 (Version 1)
Quarter: 2013Q1

REPORT INFORMATION
  Report Type: Spontaneous
  Country: PL (occurrence: PL)
  Receive Date: 20130115
  Receipt Date: 20130115
  Transmission Date: 20140127
  Serious: Yes (Other)
  Sender: FDA-Public Use
  Company Number: PL-009507513-2011SP055821

PATIENT
  Sex: Female
  Weight: 22 kg

DRUGS (4)
  1. AERIUS [Suspect]
     Indication: ASTHMA
     Dosage: 2.5 ML, QD
     Dates: start: 201103, end: 201107
  2. AERIUS [Suspect]
     Indication: RHINITIS ALLERGIC
  3. SINGULAIR [Suspect]
     Indication: ASTHMA
     Dosage: 4 MG, QD
     Route: 048
     Dates: start: 201103, end: 201111
  4. SINGULAIR [Suspect]
     Indication: RHINITIS ALLERGIC

REACTIONS (5)
  - Suicidal ideation [Recovered/Resolved]
  - Nightmare [Recovered/Resolved]
  - Abdominal pain upper [Recovered/Resolved]
  - Bone pain [Recovered/Resolved]
  - Arthralgia [Recovered/Resolved]
